FAERS Safety Report 9492413 (Version 1)
Quarter: 2013Q3

REPORT INFORMATION
  Report Type: Spontaneous
  Country: TR (occurrence: TR)
  Receive Date: 20130830
  Receipt Date: 20130830
  Transmission Date: 20140515
  Serious: Yes (Other)
  Sender: FDA-Public Use
  Company Number: TR-BRISTOL-MYERS SQUIBB COMPANY-19216803

PATIENT
  Sex: 0

DRUGS (1)
  1. IPILIMUMAB [Suspect]

REACTIONS (1)
  - Herpes zoster [Unknown]
